FAERS Safety Report 8450029-1 (Version None)
Quarter: 2012Q2

REPORT INFORMATION
  Report Type: 
  Country: None (occurrence: None)
  Receive Date: 20120620
  Receipt Date: 20120608
  Transmission Date: 20120825
  Serious: Yes (Other)
  Sender: FDA-Public Use
  Company Number: US-SANOFI-AVENTIS-2012SA041379

PATIENT
  Age: 61 Year
  Sex: Female

DRUGS (1)
  1. LANTUS [Suspect]
     Route: 058
     Dates: start: 20060101

REACTIONS (4)
  - POST PROCEDURAL HAEMORRHAGE [None]
  - CORONARY ARTERIAL STENT INSERTION [None]
  - HAEMORRHAGE [None]
  - LOSS OF CONSCIOUSNESS [None]
